FAERS Safety Report 7563268-9 (Version None)
Quarter: 2011Q2

REPORT INFORMATION
  Report Type: 
  Country: None (occurrence: None)
  Receive Date: 20110621
  Receipt Date: 20110621
  Transmission Date: 20111010
  Serious: Yes (Hospitalization)
  Sender: FDA-Public Use
  Company Number: None

PATIENT
  Age: 49 Year
  Sex: Male
  Weight: 131.5431 kg

DRUGS (1)
  1. PAXIL [Suspect]

REACTIONS (6)
  - CHEST PAIN [None]
  - CEREBROVASCULAR ACCIDENT [None]
  - EMOTIONAL DISORDER [None]
  - PSYCHOTIC DISORDER [None]
  - BALANCE DISORDER [None]
  - HYPOAESTHESIA [None]
